FAERS Safety Report 24257914 (Version 1)
Quarter: 2024Q3

REPORT INFORMATION
  Report Type: Report from Study
  Country: BR (occurrence: BR)
  Receive Date: 20240828
  Receipt Date: 20240828
  Transmission Date: 20241017
  Serious: Yes (Death, Life-Threatening)
  Sender: ROCHE
  Company Number: BR-ROCHE-10000064600

PATIENT

DRUGS (1)
  1. RITUXIMAB [Suspect]
     Active Substance: RITUXIMAB
     Indication: Non-Hodgkin^s lymphoma
     Route: 065

REACTIONS (9)
  - Pneumonia [Unknown]
  - Herpes simplex [Unknown]
  - Blood immunoglobulin G decreased [Unknown]
  - Blood immunoglobulin A decreased [Unknown]
  - Urinary tract infection [Unknown]
  - COVID-19 [Fatal]
  - Gastroenteritis [Unknown]
  - Sinusitis [Unknown]
  - Sepsis [Fatal]
